FAERS Safety Report 10230317 (Version 1)
Quarter: 2014Q2

REPORT INFORMATION
  Report Type: Spontaneous
  Country: US (occurrence: None)
  Receive Date: 20140610
  Receipt Date: 20140610
  Transmission Date: 20141212
  Serious: No
  Sender: FDA-Public Use
  Company Number: None

PATIENT
  Age: 13 Year
  Sex: Female
  Weight: 72.8 kg

DRUGS (1)
  1. LAMICTAL XR [Suspect]
     Indication: EPILEPSY
     Dates: start: 20130508, end: 20130909

REACTIONS (4)
  - Convulsion [None]
  - Unevaluable event [None]
  - Product substitution issue [None]
  - Condition aggravated [None]
